FAERS Safety Report 10498833 (Version 2)
Quarter: 2014Q4

REPORT INFORMATION
  Report Type: Spontaneous
  Country: US (occurrence: US)
  Receive Date: 20141006
  Receipt Date: 20141023
  Transmission Date: 20150528
  Serious: Yes (Other)
  Sender: FDA-Public Use
  Company Number: US-TEVA-512578USA

PATIENT
  Sex: Female
  Weight: 64.01 kg

DRUGS (6)
  1. ACTIQ [Suspect]
     Active Substance: FENTANYL CITRATE
     Indication: ANKYLOSING SPONDYLITIS
  2. ACTIQ [Suspect]
     Active Substance: FENTANYL CITRATE
     Indication: NERVE INJURY
     Route: 048
     Dates: start: 2007
  3. DURAGESIC [Concomitant]
     Active Substance: FENTANYL
     Indication: PAIN
     Dosage: 33.3333 MICROGRAM DAILY;
  4. SOMA [Concomitant]
     Active Substance: CARISOPRODOL
     Indication: MUSCLE SPASMS
  5. NEURONTIN [Concomitant]
     Active Substance: GABAPENTIN
     Indication: PAIN
  6. ACTIQ [Suspect]
     Active Substance: FENTANYL CITRATE
     Indication: PAIN

REACTIONS (16)
  - Cerebrovascular accident [Unknown]
  - Neoplasm [Unknown]
  - Headache [Unknown]
  - Skin cancer [Unknown]
  - Nausea [Not Recovered/Not Resolved]
  - Hypoaesthesia [Unknown]
  - Burning sensation [Unknown]
  - Off label use [Unknown]
  - Pain [Not Recovered/Not Resolved]
  - Insomnia [Not Recovered/Not Resolved]
  - Apathy [Not Recovered/Not Resolved]
  - Feeling abnormal [Unknown]
  - Fear [Unknown]
  - Weight decreased [Unknown]
  - Pain [Unknown]
  - Hyperhidrosis [Unknown]

NARRATIVE: CASE EVENT DATE: 2011
